FAERS Safety Report 4507931-2 (Version None)
Quarter: 2004Q4

REPORT INFORMATION
  Report Type: 
  Country: None (occurrence: None)
  Receive Date: 20041122
  Receipt Date: 20041122
  Transmission Date: 20050328
  Serious: Yes (Hospitalization, Other)
  Sender: FDA-Public Use
  Company Number: None

PATIENT
  Sex: Female

DRUGS (6)
  1. CISPLATIN [Suspect]
     Indication: SMALL CELL LUNG CANCER STAGE UNSPECIFIED
     Dosage: 98.4 MG, 99 MG, 65 MG, 65 MG
     Dates: start: 20040817
  2. CISPLATIN [Suspect]
     Indication: SMALL CELL LUNG CANCER STAGE UNSPECIFIED
     Dosage: 98.4 MG, 99 MG, 65 MG, 65 MG
     Dates: start: 20040921
  3. CISPLATIN [Suspect]
     Indication: SMALL CELL LUNG CANCER STAGE UNSPECIFIED
     Dosage: 98.4 MG, 99 MG, 65 MG, 65 MG
     Dates: start: 20041019
  4. CISPLATIN [Suspect]
     Indication: SMALL CELL LUNG CANCER STAGE UNSPECIFIED
     Dosage: 98.4 MG, 99 MG, 65 MG, 65 MG
     Dates: start: 20041108
  5. ETOPOSIDE [Suspect]
     Dosage: 197 MG, 198 MG, 130 MG, 130 MG
  6. RADIATION [Concomitant]

REACTIONS (3)
  - ANAEMIA [None]
  - MARKEDLY REDUCED DIETARY INTAKE [None]
  - PYREXIA [None]
